FAERS Safety Report 10884630 (Version 1)
Quarter: 2015Q1

REPORT INFORMATION
  Report Type: Spontaneous
  Country: US (occurrence: US)
  Receive Date: 20150304
  Receipt Date: 20150304
  Transmission Date: 20150721
  Serious: No
  Sender: FDA-Public Use
  Company Number: US-ABBVIE-14P-163-1283925-00

PATIENT
  Age: 68 Year
  Sex: Female

DRUGS (2)
  1. BIAXIN [Suspect]
     Active Substance: CLARITHROMYCIN
     Indication: PYREXIA
  2. BIAXIN [Suspect]
     Active Substance: CLARITHROMYCIN
     Indication: COUGH
     Dosage: 2 TABLETS TWICE DAILY
     Route: 048
     Dates: start: 201409

REACTIONS (5)
  - Chromaturia [Recovered/Resolved]
  - Pyrexia [Recovering/Resolving]
  - Chromaturia [Not Recovered/Not Resolved]
  - Cough [Not Recovered/Not Resolved]
  - Drug ineffective [Unknown]

NARRATIVE: CASE EVENT DATE: 20140903
